FAERS Safety Report 7629375-7 (Version None)
Quarter: 2011Q3

REPORT INFORMATION
  Report Type: 
  Country: None (occurrence: None)
  Receive Date: 20110722
  Receipt Date: 20110712
  Transmission Date: 20111222
  Serious: Yes (Other)
  Sender: FDA-Public Use
  Company Number: US-JNJFOC-20110501621

PATIENT
  Sex: Female
  Weight: 102.06 kg

DRUGS (14)
  1. AVINZA [Concomitant]
     Route: 048
     Dates: start: 20080101
  2. FOLIC ACID [Concomitant]
     Indication: MEDICAL DIET
  3. VITAMIN B [Concomitant]
     Indication: MEDICAL DIET
     Route: 048
  4. IMURAN [Concomitant]
     Indication: RHEUMATOID ARTHRITIS
     Route: 048
  5. ASPIRIN [Concomitant]
     Route: 048
     Dates: start: 20080101
  6. LIDODERM [Concomitant]
     Indication: PAIN
     Route: 062
     Dates: start: 20101001
  7. REMICADE [Suspect]
     Indication: RHEUMATOID ARTHRITIS
     Route: 042
     Dates: start: 20090101
  8. METHOTREXATE [Concomitant]
     Indication: RHEUMATOID ARTHRITIS
     Route: 048
  9. DIAZEPAM [Concomitant]
     Indication: INSOMNIA
     Dates: start: 20100101
  10. PROTONIX [Concomitant]
     Indication: GASTROOESOPHAGEAL REFLUX DISEASE
     Route: 048
     Dates: start: 20080101
  11. PREDNISONE [Concomitant]
     Indication: RHEUMATOID ARTHRITIS
     Route: 048
     Dates: start: 20050101
  12. ZOCOR [Concomitant]
     Indication: BLOOD CHOLESTEROL INCREASED
     Route: 048
     Dates: start: 20080101
  13. CLARITIN [Concomitant]
     Indication: MULTIPLE ALLERGIES
     Route: 048
  14. VICODIN [Concomitant]
     Indication: PAIN
     Route: 048
     Dates: start: 20050101

REACTIONS (7)
  - VAGINAL HAEMORRHAGE [None]
  - PRURITUS [None]
  - ANXIETY [None]
  - WEIGHT INCREASED [None]
  - HYPERTENSION [None]
  - UTERINE DISORDER [None]
  - OEDEMA PERIPHERAL [None]
